FAERS Safety Report 12958232 (Version 1)
Quarter: 2016Q4

REPORT INFORMATION
  Report Type: Spontaneous
  Country: CO (occurrence: CO)
  Receive Date: 20161120
  Receipt Date: 20161120
  Transmission Date: 20170207
  Serious: Yes (Other)
  Sender: FDA-Public Use
  Company Number: CO-BAXTER-2016BAX058142

PATIENT
  Sex: Female

DRUGS (8)
  1. ENDOXAN 1 G. [Suspect]
     Active Substance: CYCLOPHOSPHAMIDE
     Indication: BREAST CANCER
     Dosage: FAC SCHEME
     Route: 065
  2. FLOURACYL [Suspect]
     Active Substance: FLUOROURACIL
     Indication: DISEASE PROGRESSION
     Dosage: FAC SCHEME, DOSE RE-INTRODUCED
     Route: 065
  3. DOCETAXEL. [Suspect]
     Active Substance: DOCETAXEL
     Indication: DISEASE PROGRESSION
     Route: 065
  4. ADRIAMYCIN [Suspect]
     Active Substance: DOXORUBICIN HYDROCHLORIDE
     Indication: BREAST CANCER
     Dosage: FAC SCHEME
     Route: 065
  5. ENDOXAN 1 G. [Suspect]
     Active Substance: CYCLOPHOSPHAMIDE
     Indication: DISEASE PROGRESSION
     Dosage: FAC SCHEME, DOSE RE-INTRODUCED
     Route: 065
  6. ADRIAMYCIN [Suspect]
     Active Substance: DOXORUBICIN HYDROCHLORIDE
     Indication: DISEASE PROGRESSION
     Dosage: FAC SCHEME, DOSE RE-INTRODUCED
     Route: 065
  7. FLOURACYL [Suspect]
     Active Substance: FLUOROURACIL
     Indication: BREAST CANCER
     Dosage: FAC SCHEME
     Route: 065
  8. GEMCITABINE [Suspect]
     Active Substance: GEMCITABINE\GEMCITABINE HYDROCHLORIDE
     Indication: DISEASE PROGRESSION
     Route: 065

REACTIONS (4)
  - Malignant neoplasm progression [None]
  - Breast cancer [None]
  - Back pain [Unknown]
  - Disease progression [Unknown]
